FAERS Safety Report 4801928-0 (Version None)
Quarter: 2005Q4

REPORT INFORMATION
  Report Type: 
  Country: None (occurrence: None)
  Receive Date: 20051012
  Receipt Date: 20050927
  Transmission Date: 20060501
  Serious: Yes (Death)
  Sender: FDA-Public Use
  Company Number: MK200509-0321-1

PATIENT
  Age: 53 Year
  Sex: Male

DRUGS (2)
  1. METHADOSE [Suspect]
     Indication: PAIN
     Dosage: 40 MG QAM, 20 MG QHS
     Dates: start: 20050518, end: 20050519
  2. COCAINE [Suspect]

REACTIONS (5)
  - DRUG TOXICITY [None]
  - ERYTHEMA [None]
  - FATIGUE [None]
  - FLUSHING [None]
  - VOMITING [None]
